FAERS Safety Report 8475927-4 (Version None)
Quarter: 2012Q2

REPORT INFORMATION
  Report Type: 
  Country: None (occurrence: None)
  Receive Date: 20120628
  Receipt Date: 20120618
  Transmission Date: 20120825
  Serious: Yes (Other)
  Sender: FDA-Public Use
  Company Number: KR-WATSON-2012-10805

PATIENT
  Age: 56 Year
  Sex: Male

DRUGS (1)
  1. ACYCLOVIR [Suspect]
     Indication: HERPES ZOSTER
     Dosage: 500 MG, DAILY IN 2 DIVIDED DOSES
     Route: 042

REACTIONS (8)
  - HALLUCINATION, AUDITORY [None]
  - DYSARTHRIA [None]
  - NEUROTOXICITY [None]
  - CONFUSIONAL STATE [None]
  - INSOMNIA [None]
  - DISORIENTATION [None]
  - SOMNOLENCE [None]
  - ELECTROENCEPHALOGRAM ABNORMAL [None]
